FAERS Safety Report 5673530-2 (Version None)
Quarter: 2008Q1

REPORT INFORMATION
  Report Type: 
  Country: None (occurrence: None)
  Receive Date: 20080319
  Receipt Date: 20080313
  Transmission Date: 20080703
  Serious: Yes (Hospitalization)
  Sender: FDA-Public Use
  Company Number: PHFR2008CY01120

PATIENT
  Sex: Male

DRUGS (1)
  1. EMSELEX EXTENDED RELEASE [Suspect]
     Indication: URINARY INCONTINENCE
     Dosage: 15MG
     Route: 048

REACTIONS (3)
  - ASCITES [None]
  - CONSTIPATION [None]
  - URINARY RETENTION [None]
